FAERS Safety Report 8928886 (Version 1)
Quarter: 2012Q4

REPORT INFORMATION
  Report Type: 
  Country: US (occurrence: US)
  Receive Date: 20121128
  Receipt Date: 20121128
  Transmission Date: 20130627
  Serious: No
  Sender: FDA-Public Use
  Company Number: US-PFIZER INC-2012297859

PATIENT
  Age: 40 Year
  Sex: Female
  Weight: 109 kg

DRUGS (2)
  1. GABAPENTIN [Suspect]
     Indication: NERVE PAIN
     Dosage: 3x100 mg capsule, 3x/day
     Dates: start: 201207, end: 2012
  2. LYRICA [Suspect]
     Indication: NERVE PAIN
     Dosage: 75 mg, 2x/day
     Dates: start: 201208, end: 2012

REACTIONS (3)
  - Drug ineffective [Not Recovered/Not Resolved]
  - Nausea [Recovered/Resolved]
  - Vomiting [Recovered/Resolved]
